FAERS Safety Report 8488624-6 (Version None)
Quarter: 2012Q3

REPORT INFORMATION
  Report Type: 
  Country: None (occurrence: None)
  Receive Date: 20120705
  Receipt Date: 20120629
  Transmission Date: 20120928
  Serious: Yes (Other)
  Sender: FDA-Public Use
  Company Number: PHHY2012FR047479

PATIENT
  Sex: Female

DRUGS (1)
  1. TASIGNA [Suspect]
     Indication: CHRONIC MYELOID LEUKAEMIA
     Dosage: 800 MG, DAILY
     Route: 048
     Dates: start: 20110114, end: 20111001

REACTIONS (7)
  - IN-STENT CORONARY ARTERY RESTENOSIS [None]
  - DYSPNOEA EXERTIONAL [None]
  - PERIPHERAL ARTERIAL OCCLUSIVE DISEASE [None]
  - PAIN [None]
  - FEMORAL ARTERIAL STENOSIS [None]
  - CORONARY ARTERY DISEASE [None]
  - CHEST PAIN [None]
